FAERS Safety Report 5825919-6 (Version None)
Quarter: 2008Q3

REPORT INFORMATION
  Report Type: 
  Country: None (occurrence: None)
  Receive Date: 20080729
  Receipt Date: 20080721
  Transmission Date: 20090109
  Serious: Yes (Hospitalization, Disabling)
  Sender: FDA-Public Use
  Company Number: PHHY2008FR15044

PATIENT

DRUGS (3)
  1. ZOMETA [Suspect]
     Indication: PELVIC FRACTURE
     Dosage: 4 MG, QMO
     Dates: start: 20050101
  2. FLECAINIDE ACETATE [Concomitant]
     Dosage: 100 MG
  3. ASPIRIN [Concomitant]

REACTIONS (5)
  - BONE DEBRIDEMENT [None]
  - OSTEOLYSIS [None]
  - OSTEONECROSIS [None]
  - SINUSITIS [None]
  - TOOTH EXTRACTION [None]
